FAERS Safety Report 12945628 (Version 3)
Quarter: 2016Q4

REPORT INFORMATION
  Report Type: Spontaneous
  Country: GB (occurrence: GB)
  Receive Date: 20161115
  Receipt Date: 20161229
  Transmission Date: 20170207
  Serious: Yes (Hospitalization)
  Sender: FDA-Public Use
  Company Number: GB-MYLANLABS-2016M1048939

PATIENT

DRUGS (1)
  1. FONDAPARINUX [Suspect]
     Active Substance: FONDAPARINUX
     Indication: THROMBOSIS
     Dosage: 7.5 MG, QD
     Route: 058
     Dates: start: 20161103

REACTIONS (3)
  - Needle issue [Recovered/Resolved]
  - Product quality issue [Unknown]
  - Removal of foreign body [Recovered/Resolved]

NARRATIVE: CASE EVENT DATE: 20161103
